FAERS Safety Report 5355132-0 (Version None)
Quarter: 2007Q2

REPORT INFORMATION
  Report Type: 
  Country: None (occurrence: None)
  Receive Date: 20070613
  Receipt Date: 20070604
  Transmission Date: 20071010
  Serious: Yes (Hospitalization, Other)
  Sender: FDA-Public Use
  Company Number: HQWYE126229MAR07

PATIENT
  Sex: Female

DRUGS (2)
  1. HYPEN [Suspect]
     Indication: BACK PAIN
     Route: 048
     Dates: start: 20061227, end: 20070120
  2. TRANEXAMIC ACID [Suspect]
     Route: 048
     Dates: start: 20061101, end: 20070120

REACTIONS (3)
  - HEPATIC FAILURE [None]
  - HEPATITIS ACUTE [None]
  - LIVER DISORDER [None]
